FAERS Safety Report 25547901 (Version 2)
Quarter: 2025Q3

REPORT INFORMATION
  Report Type: Spontaneous
  Country: US (occurrence: US)
  Receive Date: 20250714
  Receipt Date: 20250922
  Transmission Date: 20251021
  Serious: No
  Sender: ROCHE
  Company Number: US-ROCHE-10000329261

PATIENT
  Sex: Male

DRUGS (1)
  1. COTELLIC [Suspect]
     Active Substance: COBIMETINIB FUMARATE
     Indication: Langerhans^ cell histiocytosis
     Dosage: TAKE 2 TABLETS ONCE A DAY IN THE MORNING FOR 21 DAYS THEN TAKE 7 DAYS
     Route: 048
     Dates: start: 202501

REACTIONS (5)
  - Mood altered [Unknown]
  - Haemorrhage [Unknown]
  - Contusion [Unknown]
  - Anger [Unknown]
  - Visual impairment [Unknown]
